FAERS Safety Report 4916635-3 (Version None)
Quarter: 2006Q1

REPORT INFORMATION
  Report Type: 
  Country: None (occurrence: None)
  Receive Date: 20060113
  Receipt Date: 20050927
  Transmission Date: 20060701
  Serious: No
  Sender: FDA-Public Use
  Company Number: 2005SP003214

PATIENT
  Age: 70 Year
  Sex: Male
  Weight: 107.9561 kg

DRUGS (4)
  1. LUNESTA [Suspect]
     Indication: INSOMNIA
     Dosage: 1 MG; HS; ORAL; 1MG; HS; ORAL;  2 MG; HS; ORAL; 2 MG; HS; ORAL
     Route: 048
     Dates: start: 20050923, end: 20050923
  2. LUNESTA [Suspect]
     Indication: INSOMNIA
     Dosage: 1 MG; HS; ORAL; 1MG; HS; ORAL;  2 MG; HS; ORAL; 2 MG; HS; ORAL
     Route: 048
     Dates: start: 20050923, end: 20050923
  3. LUNESTA [Suspect]
     Indication: INSOMNIA
     Dosage: 1 MG; HS; ORAL; 1MG; HS; ORAL;  2 MG; HS; ORAL; 2 MG; HS; ORAL
     Route: 048
     Dates: start: 20050924, end: 20050924
  4. LUNESTA [Suspect]
     Indication: INSOMNIA
     Dosage: 1 MG; HS; ORAL; 1MG; HS; ORAL;  2 MG; HS; ORAL; 2 MG; HS; ORAL
     Route: 048
     Dates: start: 20050925, end: 20050925

REACTIONS (2)
  - DRUG INEFFECTIVE [None]
  - MIDDLE INSOMNIA [None]
